FAERS Safety Report 17147363 (Version 6)
Quarter: 2022Q4

REPORT INFORMATION
  Report Type: Report from Study
  Country: US (occurrence: US)
  Receive Date: 20191212
  Receipt Date: 20221126
  Transmission Date: 20230113
  Serious: Yes (Other)
  Sender: FDA-Public Use
  Company Number: US-SHIRE-US201942634

PATIENT
  Sex: Male

DRUGS (6)
  1. LANADELUMAB [Suspect]
     Active Substance: LANADELUMAB
     Indication: Hereditary angioedema
     Dosage: 300 MILLIGRAM
     Route: 058
     Dates: start: 20190826
  2. LANADELUMAB [Suspect]
     Active Substance: LANADELUMAB
     Indication: Complement deficiency disease
     Dosage: 300 MILLIGRAM
     Route: 058
     Dates: start: 20190827
  3. LANADELUMAB [Suspect]
     Active Substance: LANADELUMAB
     Dosage: UNK, Q2WEEKS
     Route: 065
     Dates: start: 20190903
  4. LANADELUMAB [Suspect]
     Active Substance: LANADELUMAB
     Dosage: 300 MILLIGRAM
     Route: 058
     Dates: start: 20190913
  5. FIRAZYR [Suspect]
     Active Substance: ICATIBANT ACETATE
     Indication: Product used for unknown indication
     Dosage: 30 MILLIGRAM
     Route: 058
     Dates: start: 20130626
  6. FIRAZYR [Suspect]
     Active Substance: ICATIBANT ACETATE
     Indication: Product used for unknown indication
     Dosage: 30 MILLIGRAM
     Route: 058
     Dates: start: 20130626

REACTIONS (5)
  - Respiratory tract infection [Recovered/Resolved]
  - Excessive cerumen production [Unknown]
  - Hereditary angioedema [Recovered/Resolved]
  - Feeling of body temperature change [Unknown]
  - Product dose omission issue [Unknown]
